FAERS Safety Report 9252305 (Version 3)
Quarter: 2013Q3

REPORT INFORMATION
  Report Type: Spontaneous
  Country: US (occurrence: US)
  Receive Date: 20130424
  Receipt Date: 20130927
  Transmission Date: 20140515
  Serious: Yes (Hospitalization, Other)
  Sender: FDA-Public Use
  Company Number: US-ASTRAZENECA-2006UW20829

PATIENT
  Age: 71 Year
  Sex: Male
  Weight: 86.2 kg

DRUGS (19)
  1. NEXIUM [Suspect]
     Indication: DYSPEPSIA
     Dosage: TWICE A DAY
     Route: 048
  2. NEXIUM [Suspect]
     Indication: GASTROOESOPHAGEAL REFLUX DISEASE
     Dosage: TWICE A DAY
     Route: 048
  3. NEXIUM [Suspect]
     Indication: HYPERCHLORHYDRIA
     Dosage: TWICE A DAY
     Route: 048
  4. NEXIUM [Suspect]
     Indication: DYSPEPSIA
     Dosage: TWO TIMES A DAY
     Route: 048
     Dates: start: 2004, end: 2006
  5. NEXIUM [Suspect]
     Indication: GASTROOESOPHAGEAL REFLUX DISEASE
     Dosage: TWO TIMES A DAY
     Route: 048
     Dates: start: 2004, end: 2006
  6. NEXIUM [Suspect]
     Indication: HYPERCHLORHYDRIA
     Dosage: TWO TIMES A DAY
     Route: 048
     Dates: start: 2004, end: 2006
  7. NEXIUM [Suspect]
     Indication: DYSPEPSIA
     Route: 048
     Dates: start: 20060124
  8. NEXIUM [Suspect]
     Indication: GASTROOESOPHAGEAL REFLUX DISEASE
     Route: 048
     Dates: start: 20060124
  9. NEXIUM [Suspect]
     Indication: HYPERCHLORHYDRIA
     Route: 048
     Dates: start: 20060124
  10. TOPROL [Concomitant]
  11. SETRALINE [Concomitant]
  12. LORAZEPAM [Concomitant]
  13. HYDROCO [Concomitant]
     Indication: INTERVERTEBRAL DISC DEGENERATION
  14. BABY ASPIRIN [Concomitant]
  15. HYOSCYAMINE [Concomitant]
     Dosage: 0.125 MG
     Dates: start: 20041229
  16. AMLODIPINE [Concomitant]
     Dates: start: 20080130
  17. ALLEGRA [Concomitant]
     Dates: start: 2008
  18. TUMS [Concomitant]
  19. ALKA SELTZER [Concomitant]

REACTIONS (16)
  - Chest pain [Unknown]
  - Loss of consciousness [Unknown]
  - Lymphoma [Unknown]
  - Neoplasm malignant [Unknown]
  - Arthropathy [Unknown]
  - Nausea [Unknown]
  - Osteoporosis [Unknown]
  - Wrist fracture [Unknown]
  - Bone disorder [Unknown]
  - Anxiety disorder [Unknown]
  - Poor quality sleep [Unknown]
  - Disturbance in attention [Unknown]
  - Arthritis [Unknown]
  - Fall [Unknown]
  - Cataract [Unknown]
  - Depression [Unknown]
